FAERS Safety Report 7512665-6 (Version None)
Quarter: 2011Q2

REPORT INFORMATION
  Report Type: 
  Country: None (occurrence: None)
  Receive Date: 20110531
  Receipt Date: 20090316
  Transmission Date: 20111010
  Serious: Yes (Hospitalization, Other)
  Sender: FDA-Public Use
  Company Number: US-BAYER-200915574NA

PATIENT
  Age: 55 Year
  Sex: Male
  Weight: 54 kg

DRUGS (26)
  1. TRASYLOL [Suspect]
     Indication: ANEURYSM REPAIR
     Dosage: 100 UNK, LOADING DOSE
     Route: 042
     Dates: start: 20021113, end: 20021113
  2. ZOLOFT [Concomitant]
     Dosage: 10 MG, UNK
     Route: 048
  3. ATENOLOL [Concomitant]
     Dosage: 25 MG, UNK
     Route: 048
  4. VANCOMYCIN [Concomitant]
     Dosage: 1 G, UNK
  5. SUFENTA PRESERVATIVE FREE [Concomitant]
     Dosage: 2 UNK, UNK
  6. ALBUMIN (HUMAN) [Concomitant]
  7. PLASMA [Concomitant]
     Dosage: 1000 UNK, UNK
  8. COUMADIN [Concomitant]
     Dosage: 2 MG, UNK
     Route: 048
  9. TRASYLOL [Suspect]
     Indication: CORONARY ARTERY BYPASS
     Dosage: 200 UNK, PRIME DOSE
     Route: 042
     Dates: start: 20021113, end: 20021113
  10. PHENYTOIN [Concomitant]
     Dosage: 125 MG, UNK
     Route: 048
  11. ZYBAN [Concomitant]
     Dosage: 150 MG, UNK
     Route: 048
  12. VERSED [Concomitant]
     Dosage: 2 MG, UNK
  13. HESPAN IN EXCEL PLASTIC CONTAINER [Concomitant]
     Dosage: 500 UNK, UNK
  14. GADOLINIUM ZEOLITE [Concomitant]
     Indication: ANGIOGRAM
     Dosage: UNK
     Dates: start: 20020925
  15. TRASYLOL [Suspect]
     Indication: AORTIC VALVE REPLACEMENT
     Dosage: 50 UNK, THROUGH SURGERY
     Route: 042
     Dates: start: 20021113, end: 20021113
  16. AMLODIPINE [Concomitant]
     Dosage: UNK
     Dates: start: 20020101
  17. BACLOPHEN [Concomitant]
     Dosage: 10 MG, UNK
  18. CRESTOR [Concomitant]
     Dosage: 20 MG, UNK
     Route: 048
  19. LOTENSIN [Concomitant]
     Dosage: 20/125 MG, UNK
     Route: 048
  20. PLATELETS [Concomitant]
     Dosage: 650 UNK, UNK
  21. NITROGLYCERIN [Concomitant]
  22. DOPAMINE HCL [Concomitant]
  23. CALCIUM GLUCONATE [Concomitant]
     Dosage: 1 G, UNK
  24. HEPARIN [Concomitant]
     Dosage: 1000 U, UNK
  25. ACETYLSALICYLIC ACID SRT [Concomitant]
     Dosage: 81 MG, UNK
     Route: 048
  26. PROTAMINE SULFATE [Concomitant]
     Dosage: 300 UNK, UNK

REACTIONS (9)
  - ANHEDONIA [None]
  - ADVERSE EVENT [None]
  - CEREBROVASCULAR ACCIDENT [None]
  - FEAR [None]
  - INJURY [None]
  - PAIN [None]
  - ANXIETY [None]
  - RENAL FAILURE [None]
  - DEPRESSION [None]
